FAERS Safety Report 10241750 (Version 1)
Quarter: 2014Q2

REPORT INFORMATION
  Report Type: Report from Study
  Country: US (occurrence: US)
  Receive Date: 20140617
  Receipt Date: 20140617
  Transmission Date: 20141212
  Serious: No
  Sender: FDA-Public Use
  Company Number: US-ASTRAZENECA-2014SE40106

PATIENT
  Age: 61 Year
  Sex: Male
  Weight: 82.6 kg

DRUGS (7)
  1. CRESTOR [Suspect]
     Indication: BLOOD CHOLESTEROL INCREASED
     Route: 048
     Dates: start: 2003
  2. LORCET [Concomitant]
     Indication: ARTHRITIS
     Dosage: 4 DAILY
     Route: 048
     Dates: start: 2000
  3. XANAX [Concomitant]
     Indication: ANXIETY
     Dosage: NOT REPORTED PRN
     Route: 048
     Dates: start: 2009
  4. VENLAFAXINE [Concomitant]
     Indication: STOMATITIS
     Route: 048
  5. METFORMIN [Concomitant]
     Indication: TYPE 2 DIABETES MELLITUS
     Dosage: TWO DAILY
     Route: 048
     Dates: start: 2000
  6. BENICAR [Concomitant]
     Indication: BLOOD PRESSURE ABNORMAL
     Route: 048
     Dates: start: 1994
  7. IBUPROFEN [Concomitant]
     Indication: INFLAMMATION
     Route: 048
     Dates: start: 2000

REACTIONS (5)
  - Stomatitis [Unknown]
  - Stress [Unknown]
  - Aphagia [Unknown]
  - Weight decreased [Unknown]
  - Drug dose omission [Not Recovered/Not Resolved]
